FAERS Safety Report 8997036 (Version 1)
Quarter: 2012Q4

REPORT INFORMATION
  Report Type: Spontaneous
  Country: GB (occurrence: None)
  Receive Date: 20121221
  Receipt Date: 20121221
  Transmission Date: 20130627
  Serious: Yes (Other)
  Sender: FDA-Public Use
  Company Number: AUR-APL-2012-05349

PATIENT
  Age: 26 Year
  Sex: Female
  Weight: 70 kg

DRUGS (2)
  1. MODAFINIL [Suspect]
     Indication: SLEEP PROBLEM
     Route: 048
  2. MODAFINIL [Suspect]
     Indication: WEIGHT LOSS
     Route: 048

REACTIONS (10)
  - Self-medication [None]
  - Suicidal ideation [None]
  - Disturbance in attention [None]
  - Tachycardia [None]
  - Psychotic disorder [None]
  - Dissociation [None]
  - Anxiety [None]
  - Judgement impaired [None]
  - Mental impairment [None]
  - Drug interaction [None]
